FAERS Safety Report 9821913 (Version 1)
Quarter: 2014Q1

REPORT INFORMATION
  Report Type: Spontaneous
  Country: US (occurrence: US)
  Receive Date: 20140116
  Receipt Date: 20140116
  Transmission Date: 20141002
  Serious: No
  Sender: FDA-Public Use
  Company Number: US-TEVA-454638USA

PATIENT
  Age: 21 Year
  Sex: Female
  Weight: 93.07 kg

DRUGS (2)
  1. PARAGARD 380A [Suspect]
     Indication: CONTRACEPTION
     Dates: start: 20131218, end: 20140101
  2. PEPCID [Concomitant]

REACTIONS (1)
  - Device expulsion [Recovered/Resolved]
